FAERS Safety Report 23800040 (Version 1)
Quarter: 2024Q2

REPORT INFORMATION
  Report Type: Spontaneous
  Country: US (occurrence: None)
  Receive Date: 20240429
  Receipt Date: 20240429
  Transmission Date: 20240715
  Serious: Yes (Hospitalization)
  Sender: FDA-Public Use
  Company Number: None

PATIENT
  Age: 30 Year
  Sex: Female

DRUGS (2)
  1. ENDARI [Suspect]
     Active Substance: GLUTAMINE
     Dosage: FREQUENCY : TWICE A DAY;?
     Route: 048
  2. ENDARI [Concomitant]
     Active Substance: GLUTAMINE

REACTIONS (3)
  - Malaise [None]
  - Sickle cell anaemia with crisis [None]
  - Product use issue [None]

NARRATIVE: CASE EVENT DATE: 20240426
